FAERS Safety Report 9664021 (Version 4)
Quarter: 2014Q2

REPORT INFORMATION
  Report Type: Spontaneous
  Country: JP (occurrence: JP)
  Receive Date: 20131101
  Receipt Date: 20140423
  Transmission Date: 20141212
  Serious: Yes (Life-Threatening)
  Sender: FDA-Public Use
  Company Number: JP-SA-2013SA108309

PATIENT
  Age: 67 Year
  Sex: Male
  Weight: 65 kg

DRUGS (16)
  1. ELPLAT [Suspect]
     Indication: RECTAL CANCER
     Route: 041
     Dates: start: 20130808, end: 20130808
  2. ELPLAT [Suspect]
     Indication: RECTAL CANCER
     Route: 041
     Dates: start: 20130912, end: 20130912
  3. VECTIBIX [Suspect]
     Indication: RECTAL CANCER
     Route: 041
     Dates: start: 20130808, end: 20130808
  4. VECTIBIX [Suspect]
     Indication: RECTAL CANCER
     Route: 041
     Dates: start: 20130912, end: 20130912
  5. CALCIUM LEVOFOLINATE [Suspect]
     Indication: RECTAL CANCER
     Route: 041
     Dates: start: 20130808, end: 20130809
  6. CALCIUM LEVOFOLINATE [Suspect]
     Indication: RECTAL CANCER
     Route: 041
     Dates: start: 20130912, end: 20130912
  7. 5-FU [Concomitant]
     Indication: COLON CANCER
     Route: 041
     Dates: start: 2013, end: 201310
  8. 5-FU [Concomitant]
     Indication: COLON CANCER
     Route: 040
     Dates: start: 2013, end: 201310
  9. 5-FU [Concomitant]
     Indication: COLON CANCER
     Dates: start: 20130808, end: 20130809
  10. PREDOPA [Concomitant]
     Dates: start: 20130912, end: 20130912
  11. BOSMIN [Concomitant]
     Dates: start: 20130912, end: 20130912
  12. NORADRENALINE [Concomitant]
     Dates: start: 20130912, end: 20130912
  13. ATROPINE SULFATE [Concomitant]
     Dates: start: 20130912, end: 20130912
  14. SAXIZON [Concomitant]
     Dates: start: 20130912, end: 20130912
  15. SOL-MELCORT [Concomitant]
     Dates: start: 20130912, end: 20130912
  16. MEYLON [Concomitant]
     Dates: start: 20130912, end: 20130912

REACTIONS (2)
  - Anaphylactic shock [Recovered/Resolved]
  - Diarrhoea [Unknown]
